FAERS Safety Report 4704674-7 (Version None)
Quarter: 2005Q2

REPORT INFORMATION
  Report Type: 
  Country: None (occurrence: None)
  Receive Date: 20050630
  Receipt Date: 20050224
  Transmission Date: 20051028
  Serious: Yes (Hospitalization)
  Sender: FDA-Public Use
  Company Number: US-MERCK-0502USA03474

PATIENT
  Age: 67 Year
  Sex: Male
  Weight: 100 kg

DRUGS (7)
  1. VIOXX [Suspect]
     Indication: PAIN
     Route: 048
     Dates: start: 20011005, end: 20020908
  2. LUPRON [Concomitant]
     Route: 065
  3. DOXAZOSIN MESYLATE [Concomitant]
     Indication: PROSTATE CANCER
     Route: 065
     Dates: start: 20011001, end: 20021201
  4. DOXAZOSIN MESYLATE [Concomitant]
     Indication: HYPERTENSION
     Route: 065
     Dates: start: 20011001, end: 20021201
  5. CASODEX [Concomitant]
     Indication: PROSTATE CANCER
     Route: 065
     Dates: start: 20011001, end: 20020701
  6. CIPRO [Concomitant]
     Route: 065
  7. TOPROL-XL [Concomitant]
     Indication: BLOOD PRESSURE
     Route: 065
     Dates: start: 20011001, end: 20021201

REACTIONS (7)
  - ARRHYTHMIA [None]
  - CARDIAC ARREST [None]
  - HYPERSENSITIVITY [None]
  - MYOCARDIAL INFARCTION [None]
  - PROSTATE CANCER METASTATIC [None]
  - PULMONARY EMBOLISM [None]
  - SYNCOPE VASOVAGAL [None]
